FAERS Safety Report 23945143 (Version 1)
Quarter: 2024Q2

REPORT INFORMATION
  Report Type: Spontaneous
  Country: US (occurrence: US)
  Receive Date: 20240606
  Receipt Date: 20240606
  Transmission Date: 20240716
  Serious: Yes (Other)
  Sender: FDA-Public Use
  Company Number: US-JNJFOC-20240602982

PATIENT

DRUGS (2)
  1. TYLENOL [Suspect]
     Active Substance: ACETAMINOPHEN
     Indication: Migraine
     Dosage: 500-1000 MG AS NEEDED
     Route: 064
  2. CAFFEINE [Suspect]
     Active Substance: CAFFEINE
     Indication: Migraine
     Dosage: AS NEEDED
     Route: 064

REACTIONS (2)
  - Foetal exposure during pregnancy [Unknown]
  - Torticollis [Not Recovered/Not Resolved]

NARRATIVE: CASE EVENT DATE: 20240313
